FAERS Safety Report 9991896 (Version 1)
Quarter: 2014Q1

REPORT INFORMATION
  Report Type: Spontaneous
  Country: US (occurrence: None)
  Receive Date: 20140123
  Receipt Date: 20140123
  Transmission Date: 20141002
  Serious: Yes (Hospitalization)
  Sender: FDA-Public Use
  Company Number: UTC-040994

PATIENT
  Age: 63 Year
  Sex: Male
  Weight: 65.45 kg

DRUGS (3)
  1. TYVASO (6 MICROGRAM, AEROSOL FOR INHALATION)(TREPROSTINIL SODIUM) [Suspect]
     Indication: PULMONARY ARTERIAL HYPERTENSION
     Route: 055
     Dates: start: 20110120
  2. LETAIRIS (AMBRISENTAN)(UNKNOWN) [Concomitant]
  3. REVATIO (SILDENAFIL CITRATE)(UNKNOWN) [Concomitant]

REACTIONS (2)
  - Fall [None]
  - Syncope [None]
